FAERS Safety Report 4323413-5 (Version None)
Quarter: 2004Q1

REPORT INFORMATION
  Report Type: 
  Country: None (occurrence: None)
  Receive Date: 20040325
  Receipt Date: 20040317
  Transmission Date: 20041129
  Serious: Yes (Life-Threatening, Other)
  Sender: FDA-Public Use
  Company Number: JP-GLAXOSMITHKLINE-B0327086A

PATIENT
  Age: 70 Year
  Sex: Female

DRUGS (3)
  1. PAXIL [Suspect]
     Indication: DEPRESSION
     Dosage: 10MG PER DAY
     Route: 048
     Dates: start: 20040303
  2. MORPHINE [Concomitant]
     Route: 065
  3. VOLTAREN [Concomitant]
     Route: 054

REACTIONS (4)
  - DYSTONIA [None]
  - HALLUCINATION [None]
  - MYOCLONUS [None]
  - RESPIRATORY DEPRESSION [None]
